FAERS Safety Report 12397634 (Version 1)
Quarter: 2016Q2

REPORT INFORMATION
  Report Type: Report from Study
  Country: AR (occurrence: AR)
  Receive Date: 20160524
  Receipt Date: 20160524
  Transmission Date: 20160815
  Serious: Yes (Other)
  Sender: FDA-Public Use
  Company Number: PHHY2016AR042416

PATIENT
  Sex: Female

DRUGS (3)
  1. DIOVAN [Suspect]
     Active Substance: VALSARTAN
     Indication: HYPERTENSION
     Dosage: 2 DF 160 (UNITS WERE NOT PROVIDED), QD
     Route: 065
  2. DIOVAN [Suspect]
     Active Substance: VALSARTAN
     Indication: CARDIAC DISORDER
  3. DIOVAN [Suspect]
     Active Substance: VALSARTAN
     Indication: ARRHYTHMIA

REACTIONS (1)
  - Diabetes mellitus [Not Recovered/Not Resolved]
